FAERS Safety Report 4352302-5 (Version None)
Quarter: 2004Q2

REPORT INFORMATION
  Report Type: 
  Country: None (occurrence: None)
  Receive Date: 20040430
  Receipt Date: 20030625
  Transmission Date: 20050107
  Serious: Yes (Other)
  Sender: FDA-Public Use
  Company Number: 21529 (0)

PATIENT

DRUGS (1)
  1. ALDARA [Suspect]
     Indication: SKIN PAPILLOMA
     Dosage: TOPICAL
     Route: 061
     Dates: start: 20030101, end: 20030621

REACTIONS (3)
  - APPLICATION SITE OEDEMA [None]
  - FATIGUE [None]
  - STOMATITIS [None]
